FAERS Safety Report 16762131 (Version 1)
Quarter: 2019Q3

REPORT INFORMATION
  Report Type: Spontaneous
  Country: DE (occurrence: DE)
  Receive Date: 20190830
  Receipt Date: 20190830
  Transmission Date: 20191005
  Serious: Yes (Hospitalization)
  Sender: FDA-Public Use
  Company Number: PHHY2019DE140271

PATIENT
  Age: 55 Year
  Sex: Male
  Weight: 108 kg

DRUGS (3)
  1. PREDNISOLONE. [Suspect]
     Active Substance: PREDNISOLONE
     Indication: RHEUMATOID ARTHRITIS
     Dosage: 4 MG, QD
     Route: 048
     Dates: start: 20130515
  2. TOCILIZUMAB. [Suspect]
     Active Substance: TOCILIZUMAB
     Indication: RHEUMATOID ARTHRITIS
     Dosage: 162 MG, QW
     Route: 058
     Dates: start: 20140527
  3. DEKRISTOL [Suspect]
     Active Substance: CHOLECALCIFEROL
     Indication: OSTEOPOROSIS PROPHYLAXIS
     Dosage: 2000 IU, Q2W
     Route: 048
     Dates: start: 20130515

REACTIONS (3)
  - Lymphoedema [Recovered/Resolved]
  - Paraesthesia [Recovered/Resolved]
  - Tarsal tunnel syndrome [Recovered/Resolved]

NARRATIVE: CASE EVENT DATE: 20150708
